FAERS Safety Report 6219707-9 (Version None)
Quarter: 2009Q2

REPORT INFORMATION
  Report Type: 
  Country: None (occurrence: None)
  Receive Date: 20090609
  Receipt Date: 20090604
  Transmission Date: 20091009
  Serious: Yes (Other)
  Sender: FDA-Public Use
  Company Number: US-BRISTOL-MYERS SQUIBB COMPANY-14650451

PATIENT

DRUGS (1)
  1. ABILIFY [Suspect]
     Dosage: 18 DF = 18 TABS(STRENGTH 5MG)
     Dates: start: 20090601

REACTIONS (2)
  - ELECTROCARDIOGRAM T WAVE INVERSION [None]
  - OVERDOSE [None]
